FAERS Safety Report 4602113-8 (Version None)
Quarter: 2005Q2

REPORT INFORMATION
  Report Type: 
  Country: None (occurrence: None)
  Receive Date: 20050214
  Receipt Date: 20041115
  Transmission Date: 20051028
  Serious: Yes (Other)
  Sender: FDA-Public Use
  Company Number: 8005705

PATIENT
  Age: 28 Year
  Sex: Female

DRUGS (7)
  1. KEPPRA [Suspect]
     Indication: PETIT MAL EPILEPSY
     Dosage: 500 MG /D PO
     Route: 048
     Dates: start: 20021101
  2. KEPPRA [Suspect]
     Indication: PETIT MAL EPILEPSY
     Dosage: 3000 MG/ D PO
     Route: 048
     Dates: end: 20031101
  3. KEPPRA [Suspect]
     Indication: PETIT MAL EPILEPSY
     Dosage: 3500 MG 1/D PO
     Route: 048
     Dates: start: 20031101, end: 20040715
  4. KEPPRA [Suspect]
     Indication: PETIT MAL EPILEPSY
     Dosage: 3000 MG/D PO
     Route: 048
     Dates: start: 20040716
  5. LAMICTAL [Concomitant]
  6. KLONOPIN [Concomitant]
  7. LEXAPRO [Concomitant]

REACTIONS (5)
  - HALLUCINATION, AUDITORY [None]
  - MOOD SWINGS [None]
  - PANIC ATTACK [None]
  - SELF-INJURIOUS IDEATION [None]
  - SUICIDAL IDEATION [None]
